FAERS Safety Report 8875460 (Version 2)
Quarter: 2013Q1

REPORT INFORMATION
  Report Type: Report from Study
  Country: JP (occurrence: JP)
  Receive Date: 20121029
  Receipt Date: 20130214
  Transmission Date: 20140127
  Serious: Yes (Hospitalization)
  Sender: FDA-Public Use
  Company Number: JP-009507513-1210JPN011461

PATIENT
  Age: 59 Year
  Sex: Female
  Weight: 67 kg

DRUGS (17)
  1. PEGINTRON [Suspect]
     Indication: CHRONIC HEPATITIS C
     Dosage: 1.5 MICROGRAM PER KILOGRAM, QW
     Route: 058
     Dates: start: 20120409, end: 20120813
  2. PEGINTRON [Suspect]
     Dosage: 1.5 MICROGRAM PER KILOGRAM, QW
     Route: 058
     Dates: start: 20120824, end: 20120924
  3. REBETOL [Suspect]
     Indication: CHRONIC HEPATITIS C
     Dosage: 800 MG, QD
     Route: 048
     Dates: start: 20120409, end: 20120423
  4. REBETOL [Suspect]
     Dosage: 400 MG, QD
     Route: 048
     Dates: start: 20120424, end: 20120507
  5. REBETOL [Suspect]
     Dosage: 200 MG, QD
     Route: 048
     Dates: start: 20120508, end: 20120603
  6. REBETOL [Suspect]
     Dosage: 400 MG, QD
     Route: 048
     Dates: start: 20120604, end: 20120701
  7. REBETOL [Suspect]
     Dosage: 800 MG, QD
     Route: 048
     Dates: start: 20120702, end: 20120930
  8. TELAVIC [Suspect]
     Indication: CHRONIC HEPATITIS C
     Dosage: 2250 MG, QD
     Route: 048
     Dates: start: 20120409, end: 20120414
  9. TELAVIC [Suspect]
     Dosage: 1500 MG, QD
     Route: 048
     Dates: start: 20120415, end: 20120702
  10. PREDONINE [Suspect]
     Dosage: 6 DF, QD
     Route: 048
     Dates: start: 20120618, end: 20120702
  11. PREDONINE [Suspect]
     Dosage: 5 DF, QD
     Route: 048
     Dates: start: 20120703, end: 20120716
  12. PREDONINE [Suspect]
     Dosage: 4 DF, QD
     Route: 048
     Dates: start: 20120717, end: 20120730
  13. PREDONINE [Suspect]
     Dosage: 3 DF, QD
     Route: 048
     Dates: start: 20120731, end: 20120813
  14. PREDONINE [Suspect]
     Dosage: 2 DF, QD
     Route: 048
     Dates: start: 20120814, end: 20120821
  15. PREDONINE [Suspect]
     Dosage: 1 DF, QD
     Route: 048
     Dates: start: 20120822, end: 20120927
  16. LOXOPROFEN [Concomitant]
     Indication: PROPHYLAXIS
     Dosage: UNK, PRN
     Route: 048
     Dates: start: 20120409, end: 20120927
  17. SELBEX [Concomitant]
     Indication: PROPHYLAXIS
     Dosage: UNK, PRN
     Route: 048
     Dates: start: 20120409, end: 20120927

REACTIONS (1)
  - Sinusitis [Recovered/Resolved]
